FAERS Safety Report 10187035 (Version 1)
Quarter: 2014Q2

REPORT INFORMATION
  Report Type: Spontaneous
  Country: US (occurrence: US)
  Receive Date: 20140522
  Receipt Date: 20140522
  Transmission Date: 20141212
  Serious: No
  Sender: FDA-Public Use
  Company Number: US-009507513-1405USA009582

PATIENT
  Age: 27 Year
  Sex: Female
  Weight: 53.52 kg

DRUGS (1)
  1. NEXPLANON [Suspect]
     Indication: CONTRACEPTION
     Dosage: 1 ROD IMPLANTED
     Route: 059
     Dates: start: 20131231, end: 201405

REACTIONS (6)
  - Memory impairment [Unknown]
  - Vision blurred [Unknown]
  - Menometrorrhagia [Unknown]
  - Pain in extremity [Unknown]
  - Hypoaesthesia [Unknown]
  - Migraine [Unknown]
